FAERS Safety Report 4294613-8 (Version None)
Quarter: 2004Q1

REPORT INFORMATION
  Report Type: 
  Country: None (occurrence: None)
  Receive Date: 20040211
  Receipt Date: 20040130
  Transmission Date: 20041129
  Serious: Yes (Hospitalization)
  Sender: FDA-Public Use
  Company Number: GB-JNJFOC-20040200451

PATIENT
  Age: 73 Year
  Sex: Female

DRUGS (10)
  1. REMICADE [Suspect]
     Indication: RHEUMATOID ARTHRITIS
     Dosage: 300 MG, INTRAVENOUS
     Route: 042
     Dates: start: 20011204
  2. PREDNISOLONE [Concomitant]
  3. PARACETAMOL (PARACETAMOL) [Concomitant]
  4. DIDRONEL [Concomitant]
  5. MONIT (ISOSORBIDE MONONITRATE) [Concomitant]
  6. FERROUS SULPHATE (FERROUS SULFATE) [Concomitant]
  7. TRAMADOL (TRAMADOL HYDROCHLORIDE ) [Concomitant]
  8. TEMAZEPAM [Concomitant]
  9. ASPIRIN [Concomitant]
  10. AMLODIPINE [Concomitant]

REACTIONS (1)
  - LOWER RESPIRATORY TRACT INFECTION [None]
